FAERS Safety Report 20822467 (Version 2)
Quarter: 2022Q2

REPORT INFORMATION
  Report Type: Spontaneous
  Country: US (occurrence: US)
  Receive Date: 20220512
  Receipt Date: 20220527
  Transmission Date: 20220721
  Serious: Yes (Disabling, Other)
  Sender: FDA-Public Use
  Company Number: US-TEVA-2022-US-2035093

PATIENT
  Age: 6 Week
  Sex: Male

DRUGS (10)
  1. CARBOPLATIN [Suspect]
     Active Substance: CARBOPLATIN
     Indication: Congenital retinoblastoma
     Dosage: EVERY 28 DAYS; 6 CYCLES
     Route: 042
  2. CARBOPLATIN [Suspect]
     Active Substance: CARBOPLATIN
     Dosage: 4 CYCLES
     Route: 065
  3. ETOPOSIDE [Suspect]
     Active Substance: ETOPOSIDE
     Indication: Congenital retinoblastoma
     Dosage: EVERY 28 DAYS; 6 CYCLES
     Route: 042
  4. ETOPOSIDE [Suspect]
     Active Substance: ETOPOSIDE
     Dosage: ARET0321 REGIMEN; ON DAYS 1 AND 2
     Route: 042
  5. VINCRISTINE [Suspect]
     Active Substance: VINCRISTINE
     Indication: Congenital retinoblastoma
     Dosage: EVERY 28 DAYS; 6 CYCLES
     Route: 042
  6. VINCRISTINE [Suspect]
     Active Substance: VINCRISTINE
     Indication: Neoplasm recurrence
     Dosage: 4 CYCLES
     Route: 065
  7. VINCRISTINE [Suspect]
     Active Substance: VINCRISTINE
     Dosage: ARET0321 REGIMEN; 1.5 MG/M2 AND MAXIMUM 2 MG/M2 ON DAY 0; 4 CYCLES
     Route: 042
  8. CISPLATIN [Suspect]
     Active Substance: CISPLATIN
     Indication: Neoplasm recurrence
     Dosage: ARET0321 REGIMEN; OVER 6 HOURS ON DAY 0
     Route: 042
  9. MESNA [Suspect]
     Active Substance: MESNA
     Indication: Neoplasm recurrence
     Dosage: ARET0321 REGIMEN
     Route: 065
  10. CYCLOPHOSPHAMIDE [Suspect]
     Active Substance: CYCLOPHOSPHAMIDE
     Indication: Neoplasm recurrence
     Dosage: ARET0321 REGIMEN; OVER 1 HOURS ON DAYS 1 AND 2
     Route: 042

REACTIONS (8)
  - Drug hypersensitivity [Recovered/Resolved]
  - Deafness neurosensory [Unknown]
  - Neoplasm recurrence [Recovered/Resolved]
  - Nausea [Unknown]
  - Vomiting [Unknown]
  - Neutropenia [Recovering/Resolving]
  - Cytopenia [Unknown]
  - Drug ineffective [Unknown]
